FAERS Safety Report 8872926 (Version 1)
Quarter: 2012Q4

REPORT INFORMATION
  Report Type: 
  Country: US (occurrence: US)
  Receive Date: 20121026
  Receipt Date: 20121026
  Transmission Date: 20130627
  Serious: No
  Sender: FDA-Public Use
  Company Number: US-AMGEN-USASP2012050995

PATIENT
  Age: 85 Year
  Sex: Female
  Weight: 74.83 kg

DRUGS (9)
  1. ENBREL [Suspect]
     Indication: PRODUCT USED FOR UNKNOWN INDICATION
     Dosage: 50 mg, qwk
     Route: 058
  2. NORVASC [Concomitant]
     Dosage: 10 mg, UNK
     Route: 048
  3. SIMVASTATIN [Concomitant]
     Dosage: 10 mg, UNK
     Route: 048
  4. ALBUTEROL                          /00139501/ [Concomitant]
     Dosage: 90 mug, UNK
  5. ALBUTEROL                          /00139501/ [Concomitant]
     Dosage: 0.5 %, UNK
  6. ADVAIR [Concomitant]
     Dosage: 250/50
  7. MULTIVITAMIN                       /00097801/ [Concomitant]
     Dosage: UNK
     Route: 048
  8. MOBIC [Concomitant]
     Dosage: 15 mg, UNK
     Route: 048
  9. ASPIRIN [Concomitant]
     Dosage: 325 mg, UNK
     Route: 048

REACTIONS (1)
  - Asthma [Unknown]
